FAERS Safety Report 8721499 (Version 2)
Quarter: 2012Q4

REPORT INFORMATION
  Report Type: Report from Study
  Country: CA (occurrence: CA)
  Receive Date: 20120813
  Receipt Date: 20121226
  Transmission Date: 20130627
  Serious: Yes (Hospitalization, Other)
  Sender: FDA-Public Use
  Company Number: CA-ABBOTT-12P-028-0959022-00

PATIENT
  Age: 16 Year
  Sex: Female
  Weight: 64.92 kg

DRUGS (1)
  1. HUMIRA 40 MG/0.8 ML PEN [Suspect]
     Indication: CROHN^S DISEASE
     Route: 058
     Dates: start: 20101208, end: 20120728

REACTIONS (4)
  - Haemoglobin abnormal [Not Recovered/Not Resolved]
  - Ileectomy [Unknown]
  - Microcytic anaemia [Not Recovered/Not Resolved]
  - Gastrointestinal haemorrhage [Unknown]
